FAERS Safety Report 19057506 (Version 1)
Quarter: 2021Q1

REPORT INFORMATION
  Report Type: Spontaneous
  Country: US (occurrence: US)
  Receive Date: 20210325
  Receipt Date: 20210325
  Transmission Date: 20210420
  Serious: No
  Sender: FDA-Public Use
  Company Number: US-MYLANLABS-2021M1015774

PATIENT
  Sex: Male

DRUGS (1)
  1. PROCTOFOAM HC [Suspect]
     Active Substance: HYDROCORTISONE ACETATE\PRAMOXINE HYDROCHLORIDE
     Indication: ANAL RASH
     Dosage: UNK UNK, QID (4 TIMES/ DAY )
     Route: 054

REACTIONS (2)
  - Product quality issue [Recovered/Resolved]
  - Off label use [Not Recovered/Not Resolved]
